FAERS Safety Report 14980520 (Version 3)
Quarter: 2018Q3

REPORT INFORMATION
  Report Type: Spontaneous
  Country: US (occurrence: US)
  Receive Date: 20180606
  Receipt Date: 20180705
  Transmission Date: 20181010
  Serious: Yes (Life-Threatening)
  Sender: FDA-Public Use
  Company Number: US-ACTELION-A-US2018-173156

PATIENT
  Age: 82 Year
  Sex: Male

DRUGS (1)
  1. TRACLEER [Suspect]
     Active Substance: BOSENTAN
     Indication: PULMONARY HYPERTENSION
     Dosage: 62.5 MG, UNK
     Route: 048

REACTIONS (4)
  - Throat tightness [Recovered/Resolved]
  - Ear discomfort [Recovered/Resolved]
  - Dysphagia [Recovered/Resolved]
  - Oesophageal dilatation [Unknown]
